FAERS Safety Report 7433307-4 (Version None)
Quarter: 2011Q2

REPORT INFORMATION
  Report Type: 
  Country: None (occurrence: None)
  Receive Date: 20110422
  Receipt Date: 20110413
  Transmission Date: 20111010
  Serious: Yes (Hospitalization, Other)
  Sender: FDA-Public Use
  Company Number: ES-ELI_LILLY_AND_COMPANY-ES201104003947

PATIENT
  Sex: Female

DRUGS (17)
  1. DISGREN [Concomitant]
     Indication: CEREBRAL THROMBOSIS
     Dosage: UNK, QD
     Route: 048
     Dates: start: 20090101
  2. PARACETAMOL [Concomitant]
     Indication: PAIN
     Dosage: 1 G, BID
     Route: 048
     Dates: start: 20110301
  3. ARANESP [Concomitant]
     Dosage: UNK, WEEKLY (1/W)
     Route: 058
     Dates: start: 20110301
  4. DECORTIN [Concomitant]
     Indication: RHEUMATOID ARTHRITIS
     Dosage: 10 MG, QD
     Route: 048
     Dates: end: 20110301
  5. DEPRAX [Concomitant]
     Indication: RELAXATION THERAPY
     Dosage: 0.5 DF, QD
     Route: 048
     Dates: start: 20110301
  6. PREDNISONE [Concomitant]
     Indication: RHEUMATOID ARTHRITIS
     Dosage: 10 MG, QD
     Route: 048
     Dates: start: 20110301
  7. DURAGESIC [Concomitant]
     Indication: PAIN
     Dosage: UNK, OTHER
     Route: 061
     Dates: start: 20110301
  8. CLEXANE [Concomitant]
     Indication: PROPHYLAXIS
     Dosage: UNK, QD
     Route: 058
     Dates: start: 20110301
  9. KEPRA [Concomitant]
     Indication: EPILEPSY
     Dosage: UNK, BID
     Route: 048
     Dates: start: 20110301
  10. OMEPRAZOLE [Concomitant]
     Indication: GASTROINTESTINAL DISORDER
     Dosage: UNK, QD
     Route: 048
  11. IDAPTAN [Concomitant]
     Indication: VERTIGO
     Dosage: UNK
  12. NITRADISC [Concomitant]
     Indication: PROPHYLAXIS
     Dosage: UNK, QD
     Route: 061
     Dates: start: 20110301
  13. ZALDIAR [Concomitant]
     Indication: PAIN
     Dosage: UNK
     Route: 048
     Dates: end: 20110301
  14. SEGURIL [Concomitant]
     Indication: HYPERTENSION
     Dosage: 40 MG, BID
     Route: 048
  15. ENALAPRIL [Concomitant]
     Indication: HYPERTENSION
     Dosage: UNK
     Route: 048
     Dates: end: 20110301
  16. FORTEO [Suspect]
     Indication: OSTEOPOROSIS
     Dosage: 20 UG, DAILY (1/D)
     Route: 058
     Dates: start: 20101123
  17. AMLODIPINE BESYLATE [Concomitant]
     Dosage: UNK
     Route: 048
     Dates: start: 20110301

REACTIONS (4)
  - SEPSIS [None]
  - PULMONARY EMBOLISM [None]
  - ANAEMIA [None]
  - URINARY TRACT INFECTION [None]
